FAERS Safety Report 22099016 (Version 1)
Quarter: 2023Q1

REPORT INFORMATION
  Report Type: Spontaneous
  Country: US (occurrence: US)
  Receive Date: 20230315
  Receipt Date: 20230315
  Transmission Date: 20230417
  Serious: No
  Sender: FDA-Public Use
  Company Number: US-PFIZER INC-202300104510

PATIENT
  Age: 67 Year
  Sex: Male

DRUGS (8)
  1. PAXLOVID [Suspect]
     Active Substance: NIRMATRELVIR\RITONAVIR
     Indication: COVID-19 treatment
     Dosage: UNK
     Dates: start: 20230228, end: 20230305
  2. ASPIRIN [Concomitant]
     Active Substance: ASPIRIN
     Dosage: UNK MG
  3. CLOPIDOGREL [Concomitant]
     Active Substance: CLOPIDOGREL BISULFATE
     Dosage: UNK MG
  4. METOPROLOL [Concomitant]
     Active Substance: METOPROLOL
  5. ROSUVASTATIN [Concomitant]
     Active Substance: ROSUVASTATIN
  6. FENOFIBRATE [Concomitant]
     Active Substance: FENOFIBRATE
  7. MYDAYIS [Concomitant]
     Active Substance: AMPHETAMINE ASPARTATE\AMPHETAMINE SULFATE\DEXTROAMPHETAMINE SACCHARATE\DEXTROAMPHETAMINE SULFATE
  8. VITAMIN K2 + D3 [COLECALCIFEROL;MENAQUINONE] [Concomitant]

REACTIONS (3)
  - Symptom recurrence [Recovered/Resolved]
  - Bedridden [Recovered/Resolved]
  - Therapeutic product effect incomplete [Unknown]

NARRATIVE: CASE EVENT DATE: 20230302
